FAERS Safety Report 5073653-5 (Version None)
Quarter: 2006Q3

REPORT INFORMATION
  Report Type: 
  Country: None (occurrence: None)
  Receive Date: 20060808
  Receipt Date: 20041210
  Transmission Date: 20061208
  Serious: No
  Sender: FDA-Public Use
  Company Number: US-AMGEN-KDL103044

PATIENT
  Sex: Female
  Weight: 66.3 kg

DRUGS (8)
  1. PROCRIT [Suspect]
     Indication: PRE-EXISTING DISEASE
     Dates: start: 20040929, end: 20041215
  2. VITAMIN B COMPLEX CAP [Concomitant]
  3. MULTIVITAMIN [Concomitant]
  4. HYDREA [Concomitant]
  5. ALLOPURINOL [Concomitant]
  6. CLARITIN [Concomitant]
  7. BLOOD CELLS, PACKED HUMAN [Concomitant]
     Dates: start: 20041201
  8. IRON [Concomitant]
     Dates: start: 20041001

REACTIONS (9)
  - ASTHENIA [None]
  - BLOOD BILIRUBIN INCREASED [None]
  - CHILLS [None]
  - FATIGUE [None]
  - FEELING ABNORMAL [None]
  - HOT FLUSH [None]
  - NIGHT SWEATS [None]
  - PSEUDOMONAS INFECTION [None]
  - URINARY TRACT INFECTION [None]
